FAERS Safety Report 14638396 (Version 1)
Quarter: 2018Q1

REPORT INFORMATION
  Report Type: Spontaneous
  Country: US (occurrence: US)
  Receive Date: 20180314
  Receipt Date: 20180314
  Transmission Date: 20180509
  Serious: Yes (Life-Threatening, Hospitalization, Other)
  Sender: FDA-Public Use
  Company Number: US-PFIZER INC-2018099648

PATIENT
  Age: 47 Year
  Sex: Female
  Weight: 54.43 kg

DRUGS (5)
  1. LYRICA [Suspect]
     Active Substance: PREGABALIN
     Indication: NEUROPATHY PERIPHERAL
     Dosage: UNK
     Dates: start: 20170801
  2. CYCLOBENZAPRINE HYDROCHLORIDE. [Suspect]
     Active Substance: CYCLOBENZAPRINE HYDROCHLORIDE
     Indication: NEUROPATHY PERIPHERAL
     Dosage: 0.5 MG, AS NEEDED
     Dates: end: 201708
  3. HYDROXYZINE HYDROCHLORIDE. [Suspect]
     Active Substance: HYDROXYZINE HYDROCHLORIDE
     Indication: HYPERSENSITIVITY
  4. HYDROXYZINE HYDROCHLORIDE. [Suspect]
     Active Substance: HYDROXYZINE HYDROCHLORIDE
     Indication: ANXIETY
     Dosage: 0.5 MG, AS NEEDED
     Dates: end: 201708
  5. LYRICA [Suspect]
     Active Substance: PREGABALIN
     Indication: PAIN

REACTIONS (19)
  - Speech disorder [Not Recovered/Not Resolved]
  - Condition aggravated [Not Recovered/Not Resolved]
  - Delirium [Recovered/Resolved with Sequelae]
  - Condition aggravated [Not Recovered/Not Resolved]
  - Amnesia [Not Recovered/Not Resolved]
  - Herpes zoster [Recovered/Resolved with Sequelae]
  - Product use complaint [Unknown]
  - Vital functions abnormal [Unknown]
  - Aggression [Unknown]
  - Blister [Not Recovered/Not Resolved]
  - Depression [Not Recovered/Not Resolved]
  - Nail disorder [Unknown]
  - Product use in unapproved indication [Unknown]
  - Coma [Unknown]
  - Anxiety [Not Recovered/Not Resolved]
  - Suicidal ideation [Unknown]
  - Feeling abnormal [Unknown]
  - Nightmare [Not Recovered/Not Resolved]
  - Overdose [Unknown]

NARRATIVE: CASE EVENT DATE: 201708
